FAERS Safety Report 14476209 (Version 2)
Quarter: 2018Q2

REPORT INFORMATION
  Report Type: Spontaneous
  Country: US (occurrence: US)
  Receive Date: 20180201
  Receipt Date: 20180625
  Transmission Date: 20180711
  Serious: No
  Sender: FDA-Public Use
  Company Number: US-SA-2017SA245824

PATIENT
  Age: 64 Year
  Sex: Male

DRUGS (5)
  1. PRALUENT [Suspect]
     Active Substance: ALIROCUMAB
     Indication: PRODUCT USED FOR UNKNOWN INDICATION
     Dosage: 150 MG,QOW
     Route: 058
     Dates: start: 20170129
  2. VENTOLIN [SALBUTAMOL] [Concomitant]
     Dosage: UNK UNK,UNK
     Route: 065
  3. ACETYLSALICYLIC ACID [Concomitant]
     Active Substance: ASPIRIN
     Dosage: UNK UNK,UNK
     Route: 065
  4. CELEBREX [Concomitant]
     Active Substance: CELECOXIB
     Dosage: UNK UNK,UNK
     Route: 065
  5. PLETAL [Concomitant]
     Active Substance: CILOSTAZOL
     Dosage: UNK UNK,UNK
     Route: 065

REACTIONS (3)
  - Injection site pruritus [Unknown]
  - Cardiac disorder [Unknown]
  - Heart rate irregular [Unknown]

NARRATIVE: CASE EVENT DATE: 201710
